FAERS Safety Report 7638825-1 (Version None)
Quarter: 2011Q3

REPORT INFORMATION
  Report Type: 
  Country: None (occurrence: None)
  Receive Date: 20110726
  Receipt Date: 20110726
  Transmission Date: 20111222
  Serious: Yes (Hospitalization)
  Sender: FDA-Public Use
  Company Number: None

PATIENT
  Sex: Female
  Weight: 88.5 kg

DRUGS (4)
  1. CISPLATIN [Suspect]
     Dosage: 149 MG
     Dates: end: 20110504
  2. PEMETREXED [Suspect]
     Dosage: 990 MG
     Dates: end: 20110504
  3. FOLIC ACID [Concomitant]
  4. PHENERGAN HCL [Concomitant]

REACTIONS (2)
  - PANCREATITIS [None]
  - COLITIS [None]
